FAERS Safety Report 4632959-1 (Version None)
Quarter: 2005Q2

REPORT INFORMATION
  Report Type: 
  Country: None (occurrence: None)
  Receive Date: 20050412
  Receipt Date: 20031002
  Transmission Date: 20051028
  Serious: Yes (Other)
  Sender: FDA-Public Use
  Company Number: US-MERCK-0310USA00341M

PATIENT
  Age: 26 Year
  Sex: Female

DRUGS (4)
  1. SINGULAIR [Suspect]
     Indication: ASTHMA
     Route: 048
     Dates: start: 20030401
  2. CLINDAMYCIN [Concomitant]
     Route: 061
     Dates: start: 20020918
  3. ERYTHROMYCIN [Concomitant]
     Route: 065
     Dates: start: 20030918
  4. VITAMINS (UNSPECIFIED) [Concomitant]
     Route: 065

REACTIONS (9)
  - BRADYCARDIA FOETAL [None]
  - BREECH PRESENTATION [None]
  - CAESAREAN SECTION [None]
  - DRUG EXPOSURE DURING PREGNANCY [None]
  - PLACENTAL DISORDER [None]
  - PREGNANCY [None]
  - PREMATURE BABY [None]
  - PREMATURE LABOUR [None]
  - UTERINE CONTRACTIONS DURING PREGNANCY [None]
